FAERS Safety Report 5206632-5 (Version None)
Quarter: 2007Q1

REPORT INFORMATION
  Report Type: 
  Country: None (occurrence: None)
  Receive Date: 20070109
  Receipt Date: 20070104
  Transmission Date: 20070707
  Serious: Yes (Hospitalization, Other)
  Sender: FDA-Public Use
  Company Number: THQ2006A01130

PATIENT
  Age: 78 Year
  Sex: Male

DRUGS (7)
  1. LEUPRORELIN DEPOT INJECTION (LEUPOROLIDE ACETATE)(INJECTION) [Suspect]
     Indication: PROSTATE CANCER
     Dosage: 11.25 MG (11.25 MG, 1 IN 40 D) SUBCUTANEOUS
     Route: 058
     Dates: start: 20060623, end: 20061025
  2. BENAZEPRIL HYDROCHLORIDE [Concomitant]
  3. ATENOLOL [Concomitant]
  4. ATORVASTATIN CALCIUM [Concomitant]
  5. TENORETIC 100 [Concomitant]
  6. NIFEDIPINE [Concomitant]
  7. CIBADREX [Concomitant]

REACTIONS (15)
  - ABASIA [None]
  - C-REACTIVE PROTEIN INCREASED [None]
  - CARPAL TUNNEL SYNDROME [None]
  - CONFUSIONAL STATE [None]
  - GENERAL PHYSICAL HEALTH DETERIORATION [None]
  - HEPATOMEGALY [None]
  - JOINT RANGE OF MOTION DECREASED [None]
  - OEDEMA PERIPHERAL [None]
  - PAIN [None]
  - PLEURAL CALCIFICATION [None]
  - PLEURAL EFFUSION [None]
  - PNEUMONIA [None]
  - RESPIRATORY DISTRESS [None]
  - SENSORY LOSS [None]
  - TENOSYNOVITIS [None]
